FAERS Safety Report 24591864 (Version 5)
Quarter: 2025Q3

REPORT INFORMATION
  Report Type: Spontaneous
  Country: US (occurrence: US)
  Receive Date: 20241108
  Receipt Date: 20250816
  Transmission Date: 20251020
  Serious: Yes (Hospitalization, Other)
  Sender: ALEXION PHARMACEUTICALS
  Company Number: US-ASTRAZENECA-202410USA029538US

PATIENT
  Age: 74 Year
  Sex: Male

DRUGS (7)
  1. ROSUVASTATIN [Suspect]
     Active Substance: ROSUVASTATIN
     Indication: Prostate cancer
     Dates: start: 20240417, end: 20240417
  2. ORGOVYX [Suspect]
     Active Substance: RELUGOLIX
     Indication: Prostate cancer
     Dosage: 120 MILLIGRAM, QD
     Dates: start: 20240418
  3. ORGOVYX [Suspect]
     Active Substance: RELUGOLIX
     Dates: start: 20240417, end: 20240417
  4. LEVOTHYROXINE SODIUM [Suspect]
     Active Substance: LEVOTHYROXINE SODIUM
     Route: 065
  5. ERLEADA [Concomitant]
     Active Substance: APALUTAMIDE
     Indication: Prostate cancer
  6. ERLEADA [Concomitant]
     Active Substance: APALUTAMIDE
  7. NUBEQA [Concomitant]
     Active Substance: DAROLUTAMIDE
     Route: 065

REACTIONS (14)
  - Sepsis [Unknown]
  - Blindness transient [Unknown]
  - Cough [Unknown]
  - Memory impairment [Unknown]
  - Somnolence [Unknown]
  - Rash [Unknown]
  - Gait disturbance [Unknown]
  - Hypoacusis [Unknown]
  - Illness [Unknown]
  - Haemorrhage [Unknown]
  - Asthenia [Unknown]
  - Back pain [Unknown]
  - Anaemia [Unknown]
  - Incorrect dose administered [Unknown]
